FAERS Safety Report 10150291 (Version 1)
Quarter: 2014Q2

REPORT INFORMATION
  Report Type: Spontaneous
  Country: US (occurrence: US)
  Receive Date: 20140502
  Receipt Date: 20140502
  Transmission Date: 20141212
  Serious: Yes (Other)
  Sender: FDA-Public Use
  Company Number: US-BRISTOL-MYERS SQUIBB COMPANY-20667689

PATIENT
  Age: 55 Year
  Sex: Female

DRUGS (4)
  1. ABILIFY [Suspect]
  2. KLONOPIN [Concomitant]
  3. ADDERALL [Concomitant]
  4. LUVOX [Concomitant]
     Indication: OBSESSIVE-COMPULSIVE DISORDER

REACTIONS (3)
  - Drug withdrawal convulsions [Unknown]
  - Drug dose omission [Unknown]
  - Medication error [Unknown]
